FAERS Safety Report 5415453-X (Version None)
Quarter: 2007Q3

REPORT INFORMATION
  Report Type: 
  Country: None (occurrence: None)
  Receive Date: 20070815
  Receipt Date: 20070806
  Transmission Date: 20080115
  Serious: Yes (Other)
  Sender: FDA-Public Use
  Company Number: B0483125A

PATIENT

DRUGS (1)
  1. SENSODYNE-F [Suspect]
     Indication: DRUG USE FOR UNKNOWN INDICATION

REACTIONS (4)
  - DYSGEUSIA [None]
  - GINGIVAL ATROPHY [None]
  - GINGIVAL PAIN [None]
  - SENSITIVITY OF TEETH [None]
